FAERS Safety Report 7683115-4 (Version None)
Quarter: 2011Q3

REPORT INFORMATION
  Report Type: 
  Country: None (occurrence: None)
  Receive Date: 20110815
  Receipt Date: 20110810
  Transmission Date: 20111222
  Serious: Yes (Death, Hospitalization)
  Sender: FDA-Public Use
  Company Number: JP-PFIZER INC-2011087429

PATIENT
  Age: 64 Year
  Sex: Male
  Weight: 50.8 kg

DRUGS (13)
  1. POLARAMINE [Concomitant]
     Indication: PROPHYLAXIS
     Dosage: 5 MG, 1X/DAY
     Route: 042
  2. PROCHLORPERAZINE [Concomitant]
     Indication: PROPHYLAXIS
     Dosage: 5 MG, 3X/DAY
     Route: 048
     Dates: start: 20110509
  3. OXINORM [Concomitant]
     Dosage: UNK DOSE 1X/DAY
     Route: 048
     Dates: start: 20110329
  4. SUTENT [Suspect]
     Indication: RENAL CELL CARCINOMA
     Dosage: UNK
     Dates: start: 20100324, end: 20110127
  5. OXYCONTIN [Concomitant]
     Dosage: 5 MG, 2X/DAY
     Route: 048
     Dates: start: 20110222, end: 20110328
  6. APHTASOLON [Concomitant]
     Dosage: UNK
     Route: 061
     Dates: start: 20110222
  7. ZOLPIDEM [Concomitant]
     Dosage: 5 MEQ/L, 1X/DAY
     Route: 048
     Dates: end: 20110514
  8. LAMISIL [Concomitant]
     Dosage: UNK DOSE 1X/DAY
     Route: 061
     Dates: start: 20110408, end: 20110514
  9. TEMSIROLIMUS [Suspect]
     Indication: RENAL CELL CARCINOMA
     Dosage: 25 MG, WEEKLY
     Dates: start: 20110215, end: 20110308
  10. MUCOSTA [Concomitant]
     Indication: PROPHYLAXIS
     Dosage: 100 MG, 3X/DAY
     Route: 048
     Dates: start: 20110221, end: 20110308
  11. LOXOPROFEN [Concomitant]
     Dosage: 60 MG, 3X/DAY
     Route: 048
     Dates: start: 20110221, end: 20110308
  12. NIZORAL [Concomitant]
     Dosage: UNK
     Route: 061
     Dates: start: 20110224
  13. MAGMITT [Concomitant]
     Dosage: 250 MG, 3X/DAY
     Route: 048
     Dates: start: 20110225, end: 20110308

REACTIONS (3)
  - INTERSTITIAL LUNG DISEASE [None]
  - RENAL CELL CARCINOMA [None]
  - DISEASE PROGRESSION [None]
